FAERS Safety Report 22337772 (Version 1)
Quarter: 2023Q2

REPORT INFORMATION
  Report Type: Spontaneous
  Country: US (occurrence: US)
  Receive Date: 20230518
  Receipt Date: 20230518
  Transmission Date: 20230721
  Serious: Yes (Other)
  Sender: FDA-Public Use
  Company Number: US-COLLEGIUM PHARMACEUTICAL, INC.-20230200104

PATIENT

DRUGS (2)
  1. XTAMPZA ER [Suspect]
     Active Substance: OXYCODONE
     Indication: Pain
     Dosage: 27 MILLIGRAM, BID
     Route: 065
     Dates: start: 1999, end: 20230129
  2. HYDROCODONE [Concomitant]
     Active Substance: HYDROCODONE
     Indication: Breakthrough pain

REACTIONS (3)
  - Drug withdrawal syndrome [Unknown]
  - Product dose omission issue [Unknown]
  - Pain [Unknown]

NARRATIVE: CASE EVENT DATE: 20230129
